FAERS Safety Report 5721008-X (Version None)
Quarter: 2008Q2

REPORT INFORMATION
  Report Type: 
  Country: None (occurrence: None)
  Receive Date: 20080429
  Receipt Date: 20080424
  Transmission Date: 20081010
  Serious: Yes (Hospitalization)
  Sender: FDA-Public Use
  Company Number: FR-WYE-G01457608

PATIENT
  Sex: Female

DRUGS (13)
  1. TAZOCILLINE [Suspect]
     Indication: LUNG DISORDER
     Dosage: UNKNOWN
     Route: 042
     Dates: start: 20071221, end: 20080102
  2. AMIKACIN [Concomitant]
     Indication: LUNG DISORDER
     Dosage: UNKNOWN
     Route: 042
     Dates: start: 20071221, end: 20071224
  3. PANTOPRAZOLE SODIUM [Concomitant]
     Dosage: UNKNOWN
     Dates: start: 20071221
  4. OXAZEPAM [Concomitant]
     Dosage: UNKNOWN
     Dates: start: 20071221
  5. FUROSEMIDE [Concomitant]
     Indication: HYPERTENSION
     Route: 048
     Dates: end: 20080107
  6. ASPIRIN [Concomitant]
     Dosage: UNKNOWN
  7. AMLOR [Concomitant]
     Indication: HYPERTENSION
     Route: 048
     Dates: end: 20071221
  8. NAFTILUX [Concomitant]
     Indication: ARTERIAL DISORDER
     Route: 048
     Dates: end: 20071221
  9. LORAZEPAM [Concomitant]
     Indication: ANXIETY
     Route: 048
     Dates: end: 20071221
  10. BISOPROLOL FUMARATE [Concomitant]
     Dosage: UNKNOWN
  11. PRAVASTATIN [Concomitant]
     Dosage: UNKNOWN
  12. TAVANIC [Suspect]
     Indication: LUNG DISORDER
     Dosage: UNKNOWN
     Route: 042
     Dates: start: 20071221, end: 20080102
  13. COAPROVEL [Concomitant]
     Indication: HYPERTENSION
     Route: 048
     Dates: end: 20071221

REACTIONS (1)
  - CHOLESTASIS [None]
